FAERS Safety Report 6536597-5 (Version None)
Quarter: 2010Q1

REPORT INFORMATION
  Report Type: 
  Country: None (occurrence: None)
  Receive Date: 20100113
  Receipt Date: 20100105
  Transmission Date: 20100710
  Serious: Yes (Other)
  Sender: FDA-Public Use
  Company Number: US-PFIZER INC-2006124406

PATIENT
  Sex: Female
  Weight: 54 kg

DRUGS (3)
  1. NORVASC [Suspect]
     Indication: HYPERTENSION
     Dosage: UNK
     Dates: start: 20020101, end: 20020101
  2. NORVASC [Suspect]
     Dosage: 10 MG, UNK
     Dates: start: 20050101, end: 20050101
  3. NORVASC [Suspect]
     Dosage: UNK
     Dates: start: 20060401

REACTIONS (4)
  - ABDOMINAL DISTENSION [None]
  - BRAIN INJURY [None]
  - EYELID PTOSIS [None]
  - FACE OEDEMA [None]
